FAERS Safety Report 17717529 (Version 1)
Quarter: 2020Q2

REPORT INFORMATION
  Report Type: Spontaneous
  Country: PL (occurrence: PL)
  Receive Date: 20200428
  Receipt Date: 20200428
  Transmission Date: 20200714
  Serious: Yes (Other)
  Sender: FDA-Public Use
  Company Number: PL-PFIZER INC-2020164539

PATIENT
  Age: 57 Year
  Sex: Male
  Weight: 95 kg

DRUGS (1)
  1. SUTENT [Suspect]
     Active Substance: SUNITINIB MALATE
     Indication: RENAL CELL CARCINOMA
     Dosage: 50 MG, UNK
     Route: 048

REACTIONS (23)
  - Vomiting [Unknown]
  - Headache [Unknown]
  - Flatulence [Unknown]
  - Anaemia [Unknown]
  - Taste disorder [Unknown]
  - Nausea [Unknown]
  - Dysphonia [Unknown]
  - Pain in extremity [Unknown]
  - Thrombocytosis [Unknown]
  - Blood pressure increased [Unknown]
  - Oedema peripheral [Unknown]
  - Oral mucosa erosion [Unknown]
  - Hypoglycaemia [Unknown]
  - Deep vein thrombosis [Unknown]
  - Aspartate aminotransferase increased [Unknown]
  - Diarrhoea [Unknown]
  - Chronic kidney disease [Unknown]
  - Leukocytosis [Unknown]
  - Weight decreased [Unknown]
  - Alanine aminotransferase increased [Unknown]
  - Dry mouth [Unknown]
  - Hyperglycaemia [Unknown]
  - Decreased appetite [Unknown]
